FAERS Safety Report 25797426 (Version 1)
Quarter: 2025Q3

REPORT INFORMATION
  Report Type: Spontaneous
  Country: EU (occurrence: EU)
  Receive Date: 20250912
  Receipt Date: 20250912
  Transmission Date: 20251020
  Serious: Yes (Hospitalization)
  Sender: MYLAN
  Company Number: None

PATIENT
  Age: 30 Year
  Sex: Male
  Weight: 83 kg

DRUGS (8)
  1. CLOZAPINE [Interacting]
     Active Substance: CLOZAPINE
     Indication: Product used for unknown indication
     Dates: start: 20250808, end: 20250808
  2. LOXAPINE SUCCINATE [Interacting]
     Active Substance: LOXAPINE SUCCINATE
     Indication: Product used for unknown indication
     Dates: start: 20250808, end: 20250808
  3. PRAZEPAM [Interacting]
     Active Substance: PRAZEPAM
     Indication: Product used for unknown indication
     Dates: start: 20250808, end: 20250808
  4. PIPAMPERONE [Interacting]
     Active Substance: PIPAMPERONE
     Indication: Behaviour disorder
     Dosage: 5 GTT DROPS, BID (5 DROPS MORNING AND EVENING)
  5. VALPROATE SODIUM [Interacting]
     Active Substance: VALPROATE SODIUM
     Indication: Behaviour disorder
     Dosage: 3 DOSAGE FORM, QD
  6. TRANXENE [Interacting]
     Active Substance: CLORAZEPATE DIPOTASSIUM
     Indication: Behaviour disorder
     Dosage: 4 DOSAGE FORM, QD
  7. PERICIAZINE [Interacting]
     Active Substance: PERICIAZINE
     Indication: Behaviour disorder
     Dosage: 10 MILLIGRAM, QD (1 AT MIDDAY)
  8. TRIHEXYPHENIDYL HYDROCHLORIDE [Interacting]
     Active Substance: TRIHEXYPHENIDYL HYDROCHLORIDE
     Indication: Behaviour disorder
     Dosage: 1 DOSAGE FORM, QD (1 AT LUNCHTIME)

REACTIONS (3)
  - Coma [Recovered/Resolved]
  - Wrong patient [Recovered/Resolved]
  - Drug interaction [Recovered/Resolved]

NARRATIVE: CASE EVENT DATE: 20250808
